FAERS Safety Report 8199354-2 (Version None)
Quarter: 2012Q1

REPORT INFORMATION
  Report Type: 
  Country: None (occurrence: None)
  Receive Date: 20120309
  Receipt Date: 20120224
  Transmission Date: 20120608
  Serious: Yes (Life-Threatening, Hospitalization, Other)
  Sender: FDA-Public Use
  Company Number: SE-PFIZER INC-2012036899

PATIENT
  Age: 55 Year
  Sex: Female

DRUGS (4)
  1. RAMIPRIL [Suspect]
     Dosage: 10 MG, 1X/DAY
  2. SIMVASTATIN [Concomitant]
     Dosage: 20 MG, 1X/DAY
  3. ATENOLOL [Concomitant]
     Dosage: 50 MG, 1X/DAY
  4. METFORMIN HCL [Suspect]
     Indication: TYPE 2 DIABETES MELLITUS
     Dosage: 1000 MG, 3X/DAY

REACTIONS (9)
  - RESPIRATORY RATE INCREASED [None]
  - HYPOTENSION [None]
  - BLOOD CREATININE INCREASED [None]
  - SHOCK [None]
  - RENAL FAILURE ACUTE [None]
  - BLOOD PH DECREASED [None]
  - FATIGUE [None]
  - LACTIC ACIDOSIS [None]
  - COMA [None]
